FAERS Safety Report 6633655-1 (Version None)
Quarter: 2010Q1

REPORT INFORMATION
  Report Type: 
  Country: None (occurrence: None)
  Receive Date: 20100312
  Receipt Date: 20100308
  Transmission Date: 20100710
  Serious: Yes (Death)
  Sender: FDA-Public Use
  Company Number: US-AMGEN-ICO333421

PATIENT
  Sex: Male

DRUGS (3)
  1. DARBEPOETIN ALFA [Suspect]
     Indication: RENAL FAILURE CHRONIC
     Route: 058
     Dates: start: 20050201, end: 20080213
  2. UNSPECIFIED ANTINEOPLASTIC AGENT [Concomitant]
     Dates: start: 20060101, end: 20060301
  3. RADIATION THERAPY [Concomitant]
     Dates: start: 20070101, end: 20070101

REACTIONS (1)
  - LUNG CANCER METASTATIC [None]
